FAERS Safety Report 14705829 (Version 6)
Quarter: 2018Q2

REPORT INFORMATION
  Report Type: Spontaneous
  Country: CA (occurrence: CA)
  Receive Date: 20180402
  Receipt Date: 20180507
  Transmission Date: 20180711
  Serious: Yes (Other)
  Sender: FDA-Public Use
  Company Number: CA-CELLTRION INC.-2017CA015814

PATIENT

DRUGS (6)
  1. INFLECTRA [Suspect]
     Active Substance: INFLIXIMAB-DYYB
     Dosage: 500 MG, CYCLIC(2,6 WEEKS, THEN EVERY 8 WEEKS)
     Route: 042
     Dates: start: 20171227, end: 20171227
  2. INFLECTRA [Suspect]
     Active Substance: INFLIXIMAB-DYYB
     Dosage: 500 MG, CYCLIC(2,6 WEEKS, THEN EVERY 8 WEEKS)
     Route: 042
     Dates: start: 20180221
  3. PREDNISONE. [Concomitant]
     Active Substance: PREDNISONE
     Dosage: 40 MG, QD
  4. INFLECTRA [Suspect]
     Active Substance: INFLIXIMAB-DYYB
     Indication: COLITIS ULCERATIVE
     Dosage: 500 MG, CYCLIC, 2,6 WEEKS, THEN EVERY 8 WEEKS
     Route: 042
     Dates: start: 20170909
  5. INFLECTRA [Suspect]
     Active Substance: INFLIXIMAB-DYYB
     Dosage: 700 MG, CYCLIC (EVERY 8 WEEKS)
     Route: 042
     Dates: start: 20180427
  6. INFLECTRA [Suspect]
     Active Substance: INFLIXIMAB-DYYB
     Dosage: 500 MG, CYCLIC(2,6 WEEKS, THEN EVERY 8 WEEKS)
     Route: 042
     Dates: start: 20171101, end: 20171101

REACTIONS (10)
  - Respiratory tract infection [Recovering/Resolving]
  - Alopecia [Not Recovered/Not Resolved]
  - Blood pressure fluctuation [Unknown]
  - Rectal haemorrhage [Not Recovered/Not Resolved]
  - Candida infection [Not Recovered/Not Resolved]
  - Arthropathy [Not Recovered/Not Resolved]
  - Drug level below therapeutic [Not Recovered/Not Resolved]
  - Blood pressure fluctuation [Unknown]
  - Drug effect incomplete [Not Recovered/Not Resolved]
  - Body temperature fluctuation [Unknown]

NARRATIVE: CASE EVENT DATE: 20171227
